FAERS Safety Report 5815200-3 (Version None)
Quarter: 2008Q3

REPORT INFORMATION
  Report Type: 
  Country: None (occurrence: None)
  Receive Date: 20080718
  Receipt Date: 20080703
  Transmission Date: 20090109
  Serious: Yes (Death, Other)
  Sender: FDA-Public Use
  Company Number: TW-GENENTECH-263211

PATIENT
  Sex: Male

DRUGS (3)
  1. AVASTIN [Suspect]
     Indication: LUNG CANCER METASTATIC
     Dosage: UNK, UNK
     Route: 051
     Dates: start: 20080601, end: 20080601
  2. ERLOTINIB [Suspect]
     Indication: LUNG CANCER METASTATIC
     Dosage: UNK, UNK
     Route: 048
     Dates: start: 20080601, end: 20080601
  3. IRESSA [Suspect]
     Indication: LUNG NEOPLASM MALIGNANT
     Dosage: UNK, UNK
     Dates: end: 20080601

REACTIONS (3)
  - GENERAL PHYSICAL HEALTH DETERIORATION [None]
  - HUMERUS FRACTURE [None]
  - PNEUMONIA [None]
